FAERS Safety Report 16548553 (Version 2)
Quarter: 2020Q1

REPORT INFORMATION
  Report Type: Report from Study
  Country: US (occurrence: US)
  Receive Date: 20190709
  Receipt Date: 20200129
  Transmission Date: 20200409
  Serious: No
  Sender: FDA-Public Use
  Company Number: PHEH2019US028444

PATIENT
  Sex: Female

DRUGS (2)
  1. COSENTYX [Suspect]
     Active Substance: SECUKINUMAB
     Route: 065
  2. COSENTYX [Suspect]
     Active Substance: SECUKINUMAB
     Indication: PSORIATIC ARTHROPATHY
     Dosage: 300 MG, QMO
     Route: 058

REACTIONS (7)
  - Headache [Unknown]
  - Diarrhoea [Unknown]
  - Vessel puncture site bruise [Unknown]
  - Nausea [Unknown]
  - Pain [Unknown]
  - Vessel puncture site haemorrhage [Unknown]
  - Inappropriate schedule of product administration [Unknown]
